FAERS Safety Report 9548648 (Version 1)
Quarter: 2013Q3

REPORT INFORMATION
  Report Type: Spontaneous
  Country: US (occurrence: None)
  Receive Date: 20130701
  Receipt Date: 20130701
  Transmission Date: 20140515
  Serious: Yes (Other)
  Sender: FDA-Public Use
  Company Number: 1207USA008040

PATIENT
  Age: 36 Year
  Sex: Female

DRUGS (10)
  1. SINEMET [Suspect]
     Indication: PARKINSON^S DISEASE
     Dates: start: 2007
  2. MIRAPEX [Suspect]
  3. LEVOTHYROXINE SODIUM (LEVOTHYROXINE SODIUM) [Concomitant]
  4. PREVACID (LANSOPRAZOLE) [Concomitant]
  5. COGENTIN (BENZTROPINE MESYLATE) [Concomitant]
  6. METFORMIN (METFORMIN ) [Concomitant]
  7. SIMVASTATIN (SIMASTATIN ) [Concomitant]
  8. DIOVAN (VALSARTAN) [Concomitant]
  9. VICODIN (ACETAMINOPHEN, HYDROCODONE BITARTRATE) [Concomitant]
  10. LIDODERM (LIDOCAINE) [Concomitant]

REACTIONS (1)
  - Somnolence [None]
